FAERS Safety Report 4634049-0 (Version None)
Quarter: 2005Q2

REPORT INFORMATION
  Report Type: 
  Country: None (occurrence: None)
  Receive Date: 20050413
  Receipt Date: 20050401
  Transmission Date: 20051028
  Serious: Yes (Death, Hospitalization)
  Sender: FDA-Public Use
  Company Number: US-JNJFOC-20050400772

PATIENT
  Sex: Female

DRUGS (1)
  1. RISPERDAL [Suspect]
     Route: 065

REACTIONS (1)
  - MYOCARDIAL INFARCTION [None]
